FAERS Safety Report 12412454 (Version 1)
Quarter: 2016Q2

REPORT INFORMATION
  Report Type: Spontaneous
  Country: US (occurrence: US)
  Receive Date: 20160527
  Receipt Date: 20160527
  Transmission Date: 20160815
  Serious: Yes (Hospitalization, Other)
  Sender: FDA-Public Use
  Company Number: US-FRI-1000084955

PATIENT
  Age: 51 Year
  Sex: Male

DRUGS (3)
  1. BYSTOLIC [Suspect]
     Active Substance: NEBIVOLOL HYDROCHLORIDE
     Indication: HYPERTENSION
     Route: 048
     Dates: end: 20160512
  2. INDOCIN [Concomitant]
     Active Substance: INDOMETHACIN\INDOMETHACIN SODIUM
     Indication: GOUT
     Route: 048
  3. GOUT MEDICATION [Concomitant]
     Indication: GOUT
     Route: 048

REACTIONS (9)
  - Hepatic enzyme increased [Not Recovered/Not Resolved]
  - Dizziness [Recovered/Resolved]
  - Hyperventilation [Not Recovered/Not Resolved]
  - Hyperhidrosis [Not Recovered/Not Resolved]
  - Weight increased [Not Recovered/Not Resolved]
  - Tendon rupture [Not Recovered/Not Resolved]
  - Chest pain [Recovered/Resolved]
  - Erectile dysfunction [Not Recovered/Not Resolved]
  - Pruritus [Not Recovered/Not Resolved]

NARRATIVE: CASE EVENT DATE: 2015
